FAERS Safety Report 8908559 (Version 1)
Quarter: 2012Q4

REPORT INFORMATION
  Report Type: 
  Country: JP (occurrence: JP)
  Receive Date: 20121114
  Receipt Date: 20121114
  Transmission Date: 20130627
  Serious: Yes (Hospitalization, Other)
  Sender: FDA-Public Use
  Company Number: JP-ELI_LILLY_AND_COMPANY-JP201211000872

PATIENT
  Sex: Female
  Weight: 80 kg

DRUGS (5)
  1. ZYPREXA [Suspect]
     Indication: DELUSION
     Dosage: 30 mg, qd
     Route: 048
  2. ZYPREXA [Suspect]
     Dosage: 5 mg, qd
     Route: 048
  3. HALOMONTH [Concomitant]
     Dosage: 100 mg, monthly (1/M)
     Route: 030
  4. DEPAS [Concomitant]
     Dosage: 1 mg, qd
     Route: 048
  5. TOPINA [Concomitant]
     Dosage: 50 mg, qd
     Route: 048

REACTIONS (4)
  - Hospitalisation [Recovered/Resolved]
  - Weight increased [Unknown]
  - Constipation [Unknown]
  - Off label use [Unknown]
